FAERS Safety Report 10061182 (Version 1)
Quarter: 2014Q2

REPORT INFORMATION
  Report Type: Spontaneous
  Country: BE (occurrence: BE)
  Receive Date: 20140407
  Receipt Date: 20140407
  Transmission Date: 20141212
  Serious: Yes (Disabling)
  Sender: FDA-Public Use
  Company Number: BE-ROCHE-1373138

PATIENT
  Age: 71 Year
  Sex: Male
  Weight: 80 kg

DRUGS (4)
  1. AVASTIN [Suspect]
     Indication: BREAST CANCER METASTATIC
     Route: 042
     Dates: start: 20130327, end: 20140114
  2. XGEVA [Suspect]
     Indication: BREAST CANCER METASTATIC
     Route: 058
     Dates: start: 201310, end: 201401
  3. PACLITAXEL [Concomitant]
     Indication: BREAST CANCER METASTATIC
     Route: 042
     Dates: start: 20130327, end: 20140114
  4. ZOMETA [Concomitant]
     Indication: BREAST CANCER METASTATIC
     Route: 065
     Dates: start: 2011, end: 201310

REACTIONS (3)
  - Osteonecrosis of jaw [Recovering/Resolving]
  - Gingival inflammation [Unknown]
  - Weight decreased [Unknown]
